FAERS Safety Report 7221712-0 (Version None)
Quarter: 2011Q1

REPORT INFORMATION
  Report Type: 
  Country: None (occurrence: None)
  Receive Date: 20110112
  Receipt Date: 20110110
  Transmission Date: 20110831
  Serious: Yes (Death)
  Sender: FDA-Public Use
  Company Number: EC-ROCHE-752340

PATIENT
  Sex: Female
  Weight: 57 kg

DRUGS (5)
  1. RANITIDINE [Concomitant]
     Indication: OVARIAN CANCER METASTATIC
     Route: 042
  2. DIPHENHYDRAMINE [Concomitant]
     Indication: OVARIAN CANCER METASTATIC
     Route: 042
  3. PACLITAXEL [Concomitant]
     Indication: OVARIAN CANCER METASTATIC
     Route: 042
  4. AVASTIN [Suspect]
     Indication: OVARIAN CANCER METASTATIC
     Dosage: FREQUENCY: ONE TIME
     Route: 042
     Dates: start: 20101213
  5. DEXAMETHASONE [Concomitant]
     Indication: OVARIAN CANCER METASTATIC
     Route: 048

REACTIONS (4)
  - DEHYDRATION [None]
  - HYPOTENSION [None]
  - ABDOMINAL PAIN [None]
  - GASTROINTESTINAL PERFORATION [None]
